FAERS Safety Report 10191222 (Version 2)
Quarter: 2014Q2

REPORT INFORMATION
  Report Type: Spontaneous
  Country: JP (occurrence: JP)
  Receive Date: 20140523
  Receipt Date: 20140530
  Transmission Date: 20141212
  Serious: Yes (Life-Threatening)
  Sender: FDA-Public Use
  Company Number: JP-GE HEALTHCARE MEDICAL DIAGNOSTICS-OMPQ-PR-1405S-0514

PATIENT
  Age: 68 Year
  Sex: Male
  Weight: 72 kg

DRUGS (2)
  1. OMNIPAQUE [Suspect]
     Indication: HEPATIC NEOPLASM
     Route: 042
     Dates: start: 20140509, end: 20140509
  2. OMNIPAQUE [Suspect]
     Indication: DIAGNOSTIC PROCEDURE

REACTIONS (6)
  - Anaphylactic shock [Recovered/Resolved]
  - Pruritus [Unknown]
  - Glare [Unknown]
  - Loss of consciousness [Unknown]
  - Hypersensitivity [Unknown]
  - Urinary incontinence [Unknown]
